FAERS Safety Report 8368417-0 (Version None)
Quarter: 2012Q2

REPORT INFORMATION
  Report Type: 
  Country: None (occurrence: None)
  Receive Date: 20120517
  Receipt Date: 20120508
  Transmission Date: 20120825
  Serious: Yes (Hospitalization)
  Sender: FDA-Public Use
  Company Number: US-ELI_LILLY_AND_COMPANY-US201203003781

PATIENT
  Sex: Female
  Weight: 112.2 kg

DRUGS (5)
  1. METOPROLOL SUCCINATE [Concomitant]
     Dosage: 25 MG, UNKNOWN
  2. SIMVASTATIN [Concomitant]
     Dosage: 1 DF, EACH EVENING
  3. EVISTA [Suspect]
     Indication: OSTEOPENIA
     Dosage: 60 MG, QD
     Route: 048
     Dates: start: 20111101, end: 20120319
  4. HYDROCHLOROTH [Concomitant]
     Dosage: 12.5 MG, UNKNOWN
  5. QUINAPRIL [Concomitant]

REACTIONS (4)
  - LIP SWELLING [None]
  - SWELLING [None]
  - URTICARIA [None]
  - PRURITUS [None]
